FAERS Safety Report 18415224 (Version 1)
Quarter: 2020Q4

REPORT INFORMATION
  Report Type: Spontaneous
  Country: US (occurrence: US)
  Receive Date: 20201022
  Receipt Date: 20201022
  Transmission Date: 20210114
  Serious: No
  Sender: FDA-Public Use
  Company Number: None

PATIENT
  Age: 64 Year
  Sex: Female
  Weight: 115.67 kg

DRUGS (2)
  1. SEMAGLUTIDE (SEMAGLUTIDE 1MG/0.75ML INJ, SOLN, PEN, 1.5ML) [Suspect]
     Active Substance: SEMAGLUTIDE
     Indication: DIABETES MELLITUS
     Dates: start: 20200915, end: 20201006
  2. DULAGLUTIDE (DULAGLUTIDE 1.5MG/0.5ML INJ, SOLN, PEN) [Suspect]
     Active Substance: DULAGLUTIDE
     Route: 058
     Dates: start: 20190801, end: 20200909

REACTIONS (1)
  - Diarrhoea [None]

NARRATIVE: CASE EVENT DATE: 20201006
